FAERS Safety Report 5706632-2 (Version None)
Quarter: 2008Q2

REPORT INFORMATION
  Report Type: 
  Country: None (occurrence: None)
  Receive Date: 20080414
  Receipt Date: 20080305
  Transmission Date: 20081010
  Serious: Yes (Death, Life-Threatening, Hospitalization, Other)
  Sender: FDA-Public Use
  Company Number: TRP_05639_2008

PATIENT
  Sex: Male
  Weight: 86.1834 kg

DRUGS (4)
  1. RIBAVIRIN [Suspect]
     Indication: HEPATITIS C
     Dosage: (600 UG BID ORAL)
     Route: 048
     Dates: end: 20080223
  2. INFERGEN/INTERFERON ALFACON-1/VALEANT 15 UG [Suspect]
     Indication: HEPATITIS C
     Dosage: (15 UG QD SUBCUTANEOUS)
     Route: 058
     Dates: start: 20080108, end: 20080223
  3. BACLOFEN [Concomitant]
  4. ALPRAZOLAM [Concomitant]

REACTIONS (52)
  - ABDOMINAL PAIN [None]
  - ACUTE RESPIRATORY DISTRESS SYNDROME [None]
  - ANIMAL BITE [None]
  - ASTHENIA [None]
  - BACK PAIN [None]
  - BAND NEUTROPHIL PERCENTAGE DECREASED [None]
  - BLOOD CALCIUM DECREASED [None]
  - BLOOD CREATININE INCREASED [None]
  - BLOOD GLUCOSE DECREASED [None]
  - BLOOD PH DECREASED [None]
  - BLOOD PRESSURE INCREASED [None]
  - BLOOD SODIUM DECREASED [None]
  - BLOOD UREA INCREASED [None]
  - BLOOD URIC ACID INCREASED [None]
  - CALCIUM IONISED DECREASED [None]
  - CHILLS [None]
  - DEPRESSION [None]
  - DYSPNOEA [None]
  - FAECES PALE [None]
  - FATIGUE [None]
  - HAEMATOCRIT DECREASED [None]
  - HAEMOGLOBIN DECREASED [None]
  - HEADACHE [None]
  - HEART RATE INCREASED [None]
  - HYPERVENTILATION [None]
  - INFLUENZA LIKE ILLNESS [None]
  - LETHARGY [None]
  - LYMPHOCYTE PERCENTAGE DECREASED [None]
  - MEAN CELL HAEMOGLOBIN INCREASED [None]
  - MEAN CELL VOLUME INCREASED [None]
  - METABOLIC ACIDOSIS [None]
  - METAMYELOCYTE PERCENTAGE INCREASED [None]
  - MOOD SWINGS [None]
  - MUSCLE SPASMS [None]
  - MUSCULOSKELETAL PAIN [None]
  - MYOCARDIAL ISCHAEMIA [None]
  - NASOPHARYNGITIS [None]
  - NEUTROPHIL PERCENTAGE DECREASED [None]
  - NON-CARDIOGENIC PULMONARY OEDEMA [None]
  - PAIN [None]
  - PCO2 DECREASED [None]
  - PHARYNGOLARYNGEAL PAIN [None]
  - PLATELET COUNT DECREASED [None]
  - RED BLOOD CELL COUNT DECREASED [None]
  - RED CELL DISTRIBUTION WIDTH INCREASED [None]
  - RESPIRATORY RATE INCREASED [None]
  - SEPSIS [None]
  - SEPSIS PASTEURELLA [None]
  - SEPTIC SHOCK [None]
  - SINUS TACHYCARDIA [None]
  - STOMACH DISCOMFORT [None]
  - WHEEZING [None]
